FAERS Safety Report 18570192 (Version 1)
Quarter: 2020Q4

REPORT INFORMATION
  Report Type: Spontaneous
  Country: DE (occurrence: DE)
  Receive Date: 20201202
  Receipt Date: 20201202
  Transmission Date: 20210114
  Serious: Yes (Life-Threatening, Other)
  Sender: FDA-Public Use
  Company Number: DE-ASTRAZENECA-2020SF59354

PATIENT

DRUGS (8)
  1. DURVALUMAB. [Suspect]
     Active Substance: DURVALUMAB
     Indication: NON-SMALL CELL LUNG CANCER STAGE III
     Route: 042
     Dates: end: 202009
  2. METHYLPREDNISOLONE. [Concomitant]
     Active Substance: METHYLPREDNISOLONE
     Dosage: 100.0MG UNKNOWN
     Route: 042
  3. TAZOBACTAM [Concomitant]
     Active Substance: TAZOBACTAM
     Route: 065
  4. NAB-PACLITAXEL [Concomitant]
     Active Substance: PACLITAXEL
     Route: 065
     Dates: start: 202002
  5. VINORELBINE [Concomitant]
     Active Substance: VINORELBINE TARTRATE
     Dosage: UNKNOWN DOSE, Q21D
     Route: 065
     Dates: start: 202002
  6. PREDNISOLONE. [Concomitant]
     Active Substance: PREDNISOLONE
     Route: 065
  7. PIPERACILLIN. [Concomitant]
     Active Substance: PIPERACILLIN SODIUM
     Route: 065
  8. PLATINUM [Concomitant]
     Active Substance: PLATINUM
     Route: 065
     Dates: start: 202002

REACTIONS (5)
  - Pulmonary oedema [Unknown]
  - Lung infiltration [Unknown]
  - Pneumonia [Unknown]
  - Radiation pneumonitis [Unknown]
  - Vocal cord paresis [Unknown]

NARRATIVE: CASE EVENT DATE: 202008
